FAERS Safety Report 19208698 (Version 1)
Quarter: 2021Q2

REPORT INFORMATION
  Report Type: Spontaneous
  Country: ES (occurrence: ES)
  Receive Date: 20210503
  Receipt Date: 20210503
  Transmission Date: 20210717
  Serious: Yes (Life-Threatening, Hospitalization)
  Sender: FDA-Public Use
  Company Number: ES-BAYER-2021-131053

PATIENT
  Age: 44 Year
  Sex: Female
  Weight: 36 kg

DRUGS (6)
  1. MODERNA COVID?19 VACCINE [Suspect]
     Active Substance: CX-024414
     Indication: COVID-19 IMMUNISATION
     Route: 030
     Dates: start: 20210326, end: 20210326
  2. EUTIROX [Concomitant]
     Active Substance: LEVOTHYROXINE SODIUM
     Indication: THYROIDECTOMY
     Route: 048
     Dates: start: 201904, end: 20210406
  3. BOI?K ASPARTICO [Concomitant]
     Active Substance: ASPARTIC ACID\POTASSIUM ASCORBATE
     Indication: DIARRHOEA
     Dosage: UNK
     Route: 048
     Dates: start: 202104, end: 20210406
  4. PARIET [Concomitant]
     Active Substance: RABEPRAZOLE SODIUM
     Indication: PROPHYLAXIS
     Route: 048
     Dates: start: 202005, end: 20210406
  5. LISINOPRIL RATIOPHARM [LISINOPRIL] [Concomitant]
     Indication: HYPERTENSION
     Route: 048
     Dates: start: 201905, end: 20210406
  6. NEXAVAR [Suspect]
     Active Substance: SORAFENIB
     Indication: THYROID CANCER METASTATIC
     Route: 048
     Dates: start: 20190301, end: 20210406

REACTIONS (1)
  - Acute myocardial infarction [Recovered/Resolved with Sequelae]

NARRATIVE: CASE EVENT DATE: 20210406
